FAERS Safety Report 9691129 (Version 1)
Quarter: 2013Q4

REPORT INFORMATION
  Report Type: Spontaneous
  Country: US (occurrence: US)
  Receive Date: 20131115
  Receipt Date: 20131115
  Transmission Date: 20140711
  Serious: Yes (Other)
  Sender: FDA-Public Use
  Company Number: US-GLAXOSMITHKLINE-A1048870A

PATIENT
  Age: 61 Year
  Sex: Female

DRUGS (10)
  1. ADVAIR [Suspect]
     Indication: ASTHMA
     Dosage: 2PUFF PER DAY
     Route: 055
     Dates: start: 200009
  2. CAFFEINE [Suspect]
     Indication: PRODUCT USED FOR UNKNOWN INDICATION
     Route: 065
  3. PNEUMONIA VACCINE (NON-GSK) [Suspect]
     Indication: PROPHYLAXIS
     Route: 065
  4. TYLENOL [Concomitant]
  5. FLOVENT [Concomitant]
  6. IBUPROFEN [Concomitant]
  7. CLARITIN [Concomitant]
  8. MUCINEX D [Concomitant]
  9. NASAL SPRAY [Concomitant]
     Route: 045
  10. OMEPRAZOLE [Concomitant]

REACTIONS (5)
  - Pneumonia [Recovered/Resolved]
  - Palpitations [Recovered/Resolved]
  - Decreased immune responsiveness [Recovered/Resolved]
  - Insomnia [Recovered/Resolved]
  - Heart rate increased [Recovered/Resolved]
